FAERS Safety Report 7001963-0 (Version None)
Quarter: 2010Q3

REPORT INFORMATION
  Report Type: 
  Country: None (occurrence: None)
  Receive Date: 20100920
  Receipt Date: 20100914
  Transmission Date: 20110219
  Serious: Yes (Death, Hospitalization)
  Sender: FDA-Public Use
  Company Number: A0881676A

PATIENT
  Sex: Male

DRUGS (2)
  1. SERETIDE [Suspect]
     Indication: EMPHYSEMA
     Dosage: 1PUFF PER DAY
     Route: 055
     Dates: start: 20091201, end: 20100605
  2. SPIRIVA [Concomitant]
     Dosage: 2PUFF PER DAY
     Route: 055
     Dates: start: 20090101, end: 20100605

REACTIONS (5)
  - EATING DISORDER [None]
  - EMPHYSEMA [None]
  - ESCHAR [None]
  - ISCHAEMIC STROKE [None]
  - SPEECH DISORDER [None]
